FAERS Safety Report 21422661 (Version 3)
Quarter: 2023Q4

REPORT INFORMATION
  Report Type: Spontaneous
  Country: KR (occurrence: KR)
  Receive Date: 20221007
  Receipt Date: 20231129
  Transmission Date: 20240110
  Serious: Yes (Other)
  Sender: FDA-Public Use
  Company Number: KR-009507513-2210KOR001649

PATIENT
  Age: 72 Year
  Sex: Female
  Weight: 57.2 kg

DRUGS (15)
  1. PEMBROLIZUMAB [Suspect]
     Active Substance: PEMBROLIZUMAB
     Indication: Endometrial cancer recurrent
     Dosage: 200 MILLIGRAM, UNK
     Route: 042
     Dates: start: 20220506, end: 20220506
  2. PEMBROLIZUMAB [Suspect]
     Active Substance: PEMBROLIZUMAB
     Dosage: 200 MILLIGRAM, UNK
     Route: 042
     Dates: start: 20220527, end: 20220527
  3. PEMBROLIZUMAB [Suspect]
     Active Substance: PEMBROLIZUMAB
     Dosage: 200 MILLIGRAM, UNK
     Route: 042
     Dates: start: 20220624, end: 20220624
  4. PEMBROLIZUMAB [Suspect]
     Active Substance: PEMBROLIZUMAB
     Dosage: 200 MILLIGRAM, UNK
     Route: 042
     Dates: start: 20220715, end: 20220715
  5. PEMBROLIZUMAB [Suspect]
     Active Substance: PEMBROLIZUMAB
     Dosage: 200 MILLIGRAM, UNK
     Route: 042
     Dates: start: 20220812, end: 20220812
  6. PEMBROLIZUMAB [Suspect]
     Active Substance: PEMBROLIZUMAB
     Dosage: 200 MILLIGRAM, UNK
     Route: 042
     Dates: start: 20220902, end: 20220902
  7. PEMBROLIZUMAB [Suspect]
     Active Substance: PEMBROLIZUMAB
     Dosage: 200 MILLIGRAM, UNK
     Route: 042
     Dates: start: 20220923, end: 20220923
  8. PEMBROLIZUMAB [Suspect]
     Active Substance: PEMBROLIZUMAB
     Dosage: 200 MILLIGRAM, UNK
     Route: 042
     Dates: start: 20221104, end: 20221104
  9. PEMBROLIZUMAB [Suspect]
     Active Substance: PEMBROLIZUMAB
     Dosage: 200 MILLIGRAM, UNK
     Route: 042
     Dates: start: 20221014, end: 20221014
  10. PEMBROLIZUMAB [Suspect]
     Active Substance: PEMBROLIZUMAB
     Dosage: 200 MILLIGRAM, UNK
     Route: 042
     Dates: start: 20221129, end: 20221129
  11. PEMBROLIZUMAB [Suspect]
     Active Substance: PEMBROLIZUMAB
     Dosage: 200 MILLIGRAM, UNK
     Route: 042
     Dates: start: 20221220, end: 20221220
  12. LENVATINIB MESYLATE [Suspect]
     Active Substance: LENVATINIB MESYLATE
     Indication: Endometrial cancer recurrent
     Dosage: 14 MILLIGRAM, UNK
     Route: 048
     Dates: start: 20220506, end: 20220526
  13. LENVATINIB MESYLATE [Suspect]
     Active Substance: LENVATINIB MESYLATE
     Dosage: 10 MILLIGRAM, UNK
     Route: 048
     Dates: start: 20220614, end: 20220623
  14. LENVATINIB MESYLATE [Suspect]
     Active Substance: LENVATINIB MESYLATE
     Dosage: 8 MILLIGRAM, UNK
     Route: 048
     Dates: start: 20220624, end: 20220714
  15. LENVATINIB MESYLATE [Suspect]
     Active Substance: LENVATINIB MESYLATE
     Dosage: 4 MILLIGRAM, UNK
     Route: 048
     Dates: start: 20220715, end: 20221104

REACTIONS (10)
  - Nephropathy toxic [Recovering/Resolving]
  - Hypokalaemia [Unknown]
  - Diarrhoea [Unknown]
  - Weight decreased [Unknown]
  - Myalgia [Recovered/Resolved]
  - Dizziness [Recovered/Resolved]
  - Inappropriate schedule of product administration [Unknown]
  - Inappropriate schedule of product administration [Unknown]
  - Inappropriate schedule of product administration [Unknown]
  - Product use issue [Unknown]

NARRATIVE: CASE EVENT DATE: 20220101
